FAERS Safety Report 17125798 (Version 5)
Quarter: 2020Q1

REPORT INFORMATION
  Report Type: Report from Study
  Country: None (occurrence: CO)
  Receive Date: 20191208
  Receipt Date: 20200127
  Transmission Date: 20200409
  Serious: Yes (Hospitalization, Other)
  Sender: FDA-Public Use
  Company Number: CO-ABBVIE-19K-036-3144153-00

PATIENT
  Age: 57 Year
  Sex: Female
  Weight: 42 kg

DRUGS (4)
  1. IMBRUVICA [Suspect]
     Active Substance: IBRUTINIB
     Indication: MANTLE CELL LYMPHOMA
     Route: 048
     Dates: start: 20190330, end: 20190506
  2. AMOXICILLIN. [Concomitant]
     Active Substance: AMOXICILLIN
     Indication: PRODUCT USED FOR UNKNOWN INDICATION
  3. IMBRUVICA [Suspect]
     Active Substance: IBRUTINIB
     Route: 048
     Dates: start: 20190528, end: 2019
  4. IMBRUVICA [Suspect]
     Active Substance: IBRUTINIB
     Route: 048
     Dates: start: 2019, end: 2019

REACTIONS (28)
  - Bronchitis [Not Recovered/Not Resolved]
  - Vomiting [Recovering/Resolving]
  - Depressed mood [Recovered/Resolved with Sequelae]
  - Swelling of eyelid [Not Recovered/Not Resolved]
  - Kidney infection [Recovering/Resolving]
  - Lymphadenopathy [Not Recovered/Not Resolved]
  - Dizziness [Not Recovered/Not Resolved]
  - Eyelid rash [Not Recovered/Not Resolved]
  - Hypoaesthesia [Not Recovered/Not Resolved]
  - Rash [Not Recovered/Not Resolved]
  - Swelling face [Not Recovered/Not Resolved]
  - Pneumonia [Recovering/Resolving]
  - Immunodeficiency [Recovering/Resolving]
  - Drug ineffective [Unknown]
  - Abdominal distension [Not Recovered/Not Resolved]
  - Swelling [Not Recovered/Not Resolved]
  - Laziness [Recovered/Resolved with Sequelae]
  - Acne [Recovering/Resolving]
  - Pain [Not Recovered/Not Resolved]
  - Gastroenteritis [Recovered/Resolved with Sequelae]
  - Product colour issue [Unknown]
  - Fatigue [Recovered/Resolved with Sequelae]
  - Gastritis [Recovering/Resolving]
  - Synovial cyst [Not Recovered/Not Resolved]
  - Cough [Recovering/Resolving]
  - Pyrexia [Not Recovered/Not Resolved]
  - Muscle spasms [Not Recovered/Not Resolved]
  - Product packaging issue [Unknown]

NARRATIVE: CASE EVENT DATE: 20190401
